FAERS Safety Report 17833847 (Version 1)
Quarter: 2020Q2

REPORT INFORMATION
  Report Type: Spontaneous
  Country: US (occurrence: US)
  Receive Date: 20200527
  Receipt Date: 20200527
  Transmission Date: 20200714
  Serious: Yes (Other)
  Sender: FDA-Public Use
  Company Number: None

PATIENT
  Age: 51 Year
  Sex: Male

DRUGS (16)
  1. PERCOCET [Concomitant]
     Active Substance: ACETAMINOPHEN\OXYCODONE HYDROCHLORIDE
  2. LYRICA [Concomitant]
     Active Substance: PREGABALIN
  3. BUMETANIDE. [Concomitant]
     Active Substance: BUMETANIDE
  4. NARCAN NASAL SPARY [Concomitant]
  5. RENVELA [Concomitant]
     Active Substance: SEVELAMER CARBONATE
  6. ALBUTEROL AER HFA [Concomitant]
  7. OPSUMIT [Suspect]
     Active Substance: MACITENTAN
     Indication: PULMONARY ARTERIAL HYPERTENSION
     Route: 048
     Dates: start: 201710
  8. SILDENAFIL. [Concomitant]
     Active Substance: SILDENAFIL
  9. METHOCARBMOL [Concomitant]
  10. METOPROLOL. [Concomitant]
     Active Substance: METOPROLOL
  11. BUPROPION. [Concomitant]
     Active Substance: BUPROPION
  12. FLONASE [Concomitant]
     Active Substance: FLUTICASONE PROPIONATE
  13. ATROVENT [Concomitant]
     Active Substance: IPRATROPIUM BROMIDE
  14. TRIAMCINOLON TOP CREAM [Concomitant]
  15. ALLOPURINOL. [Concomitant]
     Active Substance: ALLOPURINOL
  16. FLECAINIDE [Concomitant]
     Active Substance: FLECAINIDE

REACTIONS (1)
  - Catheter site haemorrhage [None]

NARRATIVE: CASE EVENT DATE: 20200506
